FAERS Safety Report 13172055 (Version 2)
Quarter: 2017Q1

REPORT INFORMATION
  Report Type: Spontaneous
  Country: IT (occurrence: IT)
  Receive Date: 20170201
  Receipt Date: 20170207
  Transmission Date: 20170428
  Serious: Yes (Other)
  Sender: FDA-Public Use
  Company Number: IT-AUROBINDO-AUR-APL-2017-28221

PATIENT
  Age: 34 Year
  Sex: Male

DRUGS (2)
  1. VALPROIC ACID. [Concomitant]
     Active Substance: VALPROIC ACID
     Indication: SEIZURE
     Dosage: 100 MG, DAILY
     Route: 065
  2. LAMOTRIGINE. [Suspect]
     Active Substance: LAMOTRIGINE
     Indication: EPILEPSY
     Dosage: 400 MG, DAILY
     Route: 065

REACTIONS (6)
  - Drug level above therapeutic [Unknown]
  - Complex partial seizures [Unknown]
  - Myoclonus [Unknown]
  - Automatism [Unknown]
  - Somnolence [Unknown]
  - Confusional state [Unknown]
